FAERS Safety Report 14566060 (Version 4)
Quarter: 2018Q2

REPORT INFORMATION
  Report Type: Spontaneous
  Country: US (occurrence: US)
  Receive Date: 20180223
  Receipt Date: 20180412
  Transmission Date: 20180711
  Serious: No
  Sender: FDA-Public Use
  Company Number: US-PFIZER INC-2018077337

PATIENT
  Age: 57 Year
  Sex: Female
  Weight: 122.4 kg

DRUGS (1)
  1. REVATIO [Suspect]
     Active Substance: SILDENAFIL CITRATE
     Indication: PULMONARY HYPERTENSION
     Dosage: 20 MG, 3X/DAY
     Route: 048
     Dates: start: 2015

REACTIONS (2)
  - Back pain [Unknown]
  - Painful respiration [Not Recovered/Not Resolved]

NARRATIVE: CASE EVENT DATE: 20180215
